FAERS Safety Report 7387400-5 (Version None)
Quarter: 2011Q1

REPORT INFORMATION
  Report Type: 
  Country: None (occurrence: None)
  Receive Date: 20110331
  Receipt Date: 20110318
  Transmission Date: 20110831
  Serious: Yes (Death, Hospitalization, Other)
  Sender: FDA-Public Use
  Company Number: US-CELGENEUS-163-21880-11023201

PATIENT
  Sex: Male

DRUGS (27)
  1. EXCEDRIN (MIGRAINE) [Concomitant]
     Route: 048
     Dates: start: 20100131
  2. OXYCODONE HCL AND ACETAMINOPHEN [Concomitant]
     Dosage: 5MG-325MG
     Route: 065
     Dates: start: 20110126
  3. OXYCONTIN [Concomitant]
     Dosage: 10 MILLIGRAM
     Route: 048
     Dates: start: 20101112
  4. LOVAZA [Concomitant]
     Dosage: 1000 MILLIGRAM
     Route: 048
     Dates: start: 20100416
  5. LEVAQUIN [Concomitant]
     Dosage: 750 MILLIGRAM
     Route: 048
     Dates: start: 20110212
  6. VITAMIN D [Concomitant]
     Dosage: 50000 IU (INTERNATIONAL UNIT)
     Route: 048
     Dates: start: 20100131
  7. OXYCODONE HCL AND ACETAMINOPHEN [Concomitant]
     Dosage: 5MG-325MG
     Route: 065
     Dates: start: 20100416
  8. LORAZEPAM [Concomitant]
     Dosage: .5 MILLIGRAM
     Route: 048
     Dates: start: 20100416
  9. MULTIPLE VITAMIN/IRON [Concomitant]
     Dosage: 50 MILLILITER
     Route: 065
     Dates: start: 20100131
  10. ACETAMINOPHEN [Concomitant]
     Dosage: 500 MILLIGRAM
     Route: 048
     Dates: start: 20100131
  11. CALCIUM W/D [Concomitant]
     Dosage: 600 MILLIGRAM
     Route: 048
     Dates: start: 20100131
  12. PILOCARPINE [Concomitant]
     Dosage: 5 MILLIGRAM
     Route: 048
     Dates: start: 20101108
  13. SENNA-S [Concomitant]
     Dosage: 8.6MG/50MG
     Route: 048
     Dates: start: 20101112
  14. OXYCONTIN [Concomitant]
     Dosage: 10 MILLIGRAM
     Route: 048
     Dates: start: 20110126
  15. REVLIMID [Suspect]
     Dosage: VARYING DOSES OF 15-10-5MG
     Route: 048
     Dates: start: 20090701
  16. GABAPENTIN [Concomitant]
     Dosage: 600 MILLIGRAM
     Route: 048
     Dates: start: 20100131
  17. DEXAMETHASONE [Concomitant]
     Dosage: 4 MILLIGRAM
     Route: 048
     Dates: start: 20100802
  18. LORAZEPAM [Concomitant]
     Dosage: .5 MILLIGRAM
     Route: 048
     Dates: start: 20110114, end: 20110221
  19. PILOCARPINE [Concomitant]
     Dosage: 5 MILLIGRAM
     Route: 048
     Dates: start: 20101112
  20. REVLIMID [Suspect]
     Dosage: 10 MILLIGRAM
     Route: 048
     Dates: start: 20100601, end: 20110201
  21. OMEPRAZOLE [Concomitant]
     Dosage: 20 MILLIGRAM
     Route: 048
     Dates: start: 20100131
  22. DEXAMETHASONE [Concomitant]
     Dosage: 4 MILLIGRAM
     Route: 048
     Dates: start: 20100416
  23. PENICILLIN VK [Concomitant]
     Dosage: 500 MILLIGRAM
     Route: 048
     Dates: start: 20100927
  24. VERAPAMIL [Concomitant]
     Dosage: 240 MILLIGRAM
     Route: 048
     Dates: start: 20100920
  25. REVLIMID [Suspect]
     Indication: MULTIPLE MYELOMA
     Dosage: 10 MILLIGRAM
     Route: 048
     Dates: start: 20090601, end: 20090701
  26. VERAPAMIL [Concomitant]
     Dosage: 120 MILLIGRAM
     Route: 048
     Dates: start: 20100416
  27. PENICILLIN VK [Concomitant]
     Dosage: 500 MILLIGRAM
     Route: 048
     Dates: start: 20100416

REACTIONS (4)
  - PNEUMONIA [None]
  - RENAL FAILURE [None]
  - HYPOTENSION [None]
  - RESPIRATORY FAILURE [None]
